FAERS Safety Report 12587767 (Version 2)
Quarter: 2016Q3

REPORT INFORMATION
  Report Type: Spontaneous
  Country: US (occurrence: US)
  Receive Date: 20160725
  Receipt Date: 20160727
  Transmission Date: 20161109
  Serious: Yes (Other)
  Sender: FDA-Public Use
  Company Number: US-PFIZER INC-2016351368

PATIENT
  Age: 65 Year
  Sex: Female
  Weight: 87.98 kg

DRUGS (21)
  1. METHYLPHENIDATE. [Concomitant]
     Active Substance: METHYLPHENIDATE
     Indication: FATIGUE
  2. BACLOFEN. [Concomitant]
     Active Substance: BACLOFEN
     Indication: MUSCLE SPASMS
     Dosage: 20 MG, 3X/DAY
     Dates: start: 201411
  3. SUMATRIPTAN SUCCINATE. [Concomitant]
     Active Substance: SUMATRIPTAN SUCCINATE
     Indication: MIGRAINE
     Dosage: 50 MG, ONE OR TWO TABLETS AS NEEDED
     Dates: start: 201409
  4. CLARITIN [Concomitant]
     Active Substance: LORATADINE
     Indication: ASTHMA
  5. DIAZEPAM. [Concomitant]
     Active Substance: DIAZEPAM
     Dosage: 5 MG, 2X/DAY
     Route: 048
     Dates: start: 2011
  6. LYRICA [Suspect]
     Active Substance: PREGABALIN
     Indication: NERVE INJURY
  7. METHYLPHENIDATE. [Concomitant]
     Active Substance: METHYLPHENIDATE
     Indication: SOMNOLENCE
  8. BACLOFEN. [Concomitant]
     Active Substance: BACLOFEN
     Indication: PAIN
     Dosage: 10 MG, 1X/DAY NIGHT
  9. BACLOFEN. [Concomitant]
     Active Substance: BACLOFEN
     Indication: PAIN
  10. LYRICA [Suspect]
     Active Substance: PREGABALIN
     Indication: FIBROMYALGIA
     Dosage: 100 MG, 3X/DAY
     Route: 048
     Dates: start: 201505
  11. METHYLPHENIDATE. [Concomitant]
     Active Substance: METHYLPHENIDATE
     Indication: DISTURBANCE IN ATTENTION
     Dosage: 10 MG, 1X/DAY
     Dates: start: 201406
  12. LYRICA [Suspect]
     Active Substance: PREGABALIN
     Indication: MUSCLE DISORDER
     Dosage: 100 MG, 1X/DAY AT NIGHT
     Route: 048
     Dates: start: 201604
  13. LYRICA [Suspect]
     Active Substance: PREGABALIN
     Indication: MYALGIA
  14. LYRICA [Suspect]
     Active Substance: PREGABALIN
     Indication: HERPES ZOSTER
  15. DIAZEPAM. [Concomitant]
     Active Substance: DIAZEPAM
     Dosage: 5 MG, DAILY
     Route: 048
  16. WELLBUTRIN [Concomitant]
     Active Substance: BUPROPION HYDROCHLORIDE
     Dosage: UNK
  17. LYRICA [Suspect]
     Active Substance: PREGABALIN
     Indication: NEURALGIA
  18. LYRICA [Suspect]
     Active Substance: PREGABALIN
     Indication: DYSTONIA
  19. CLARITIN [Concomitant]
     Active Substance: LORATADINE
     Indication: HYPERSENSITIVITY
     Dosage: 10 MG, ONE EVERY TWO WEEKS
     Dates: start: 2008
  20. BUPROPION HCL [Concomitant]
     Active Substance: BUPROPION HYDROCHLORIDE
     Indication: ASTHENIA
     Dosage: 100 MG, 1X/DAY MORNING
     Dates: start: 2009
  21. BUPROPION HCL [Concomitant]
     Active Substance: BUPROPION HYDROCHLORIDE
     Indication: SOMNOLENCE

REACTIONS (13)
  - Blood glucose decreased [Unknown]
  - Logorrhoea [Unknown]
  - Suicidal ideation [Unknown]
  - Hallucination [Unknown]
  - Vision blurred [Unknown]
  - Somnolence [Recovering/Resolving]
  - Cataract [Unknown]
  - Memory impairment [Unknown]
  - Loss of consciousness [Unknown]
  - Swollen tongue [Not Recovered/Not Resolved]
  - Intentional product use issue [Not Recovered/Not Resolved]
  - Suicide attempt [Unknown]
  - Pharyngeal oedema [Not Recovered/Not Resolved]

NARRATIVE: CASE EVENT DATE: 201506
